FAERS Safety Report 16366369 (Version 2)
Quarter: 2019Q2

REPORT INFORMATION
  Report Type: Spontaneous
  Country: US (occurrence: US)
  Receive Date: 20190529
  Receipt Date: 20190603
  Transmission Date: 20190711
  Serious: No
  Sender: FDA-Public Use
  Company Number: US-BAYER-2019-104280

PATIENT
  Age: 16 Year
  Sex: Female

DRUGS (1)
  1. INTERFERON BETA - 1B [Suspect]
     Active Substance: INTERFERON BETA-1B
     Indication: MALIGNANT MELANOMA
     Dosage: HIGH-DOSE
     Route: 065

REACTIONS (3)
  - Depression [None]
  - Product use in unapproved indication [None]
  - Pyrexia [None]
